FAERS Safety Report 5096870-7 (Version None)
Quarter: 2006Q3

REPORT INFORMATION
  Report Type: 
  Country: None (occurrence: None)
  Receive Date: 20060901
  Receipt Date: 20060901
  Transmission Date: 20061208
  Serious: Yes (Hospitalization)
  Sender: FDA-Public Use
  Company Number: None

PATIENT
  Age: 86 Year
  Sex: Male
  Weight: 79.3795 kg

DRUGS (1)
  1. PREGABALIN [Suspect]
     Indication: PAIN IN EXTREMITY
     Dosage: 150 MG  BID  PO
     Route: 048
     Dates: start: 20060816, end: 20060816

REACTIONS (4)
  - COORDINATION ABNORMAL [None]
  - GAIT DISTURBANCE [None]
  - READING DISORDER [None]
  - SENSATION OF HEAVINESS [None]
